FAERS Safety Report 8602730-4 (Version None)
Quarter: 2012Q3

REPORT INFORMATION
  Report Type: 
  Country: None (occurrence: None)
  Receive Date: 20120817
  Receipt Date: 20120809
  Transmission Date: 20120928
  Serious: Yes (Other)
  Sender: FDA-Public Use
  Company Number: CN-ASTRAZENECA-2012SE56465

PATIENT
  Age: 47 Year
  Sex: Male

DRUGS (2)
  1. LIDOCAINE [Suspect]
     Indication: HEART RATE INCREASED
     Route: 042
  2. LIDOCAINE [Suspect]
     Dosage: CONTINUOUS INFUSION OF 1MG/H.
     Route: 042

REACTIONS (1)
  - MANIA [None]
